FAERS Safety Report 11856358 (Version 1)
Quarter: 2015Q4

REPORT INFORMATION
  Report Type: Spontaneous
  Country: FR (occurrence: FR)
  Receive Date: 20151221
  Receipt Date: 20151221
  Transmission Date: 20160305
  Serious: Yes (Life-Threatening, Hospitalization)
  Sender: FDA-Public Use
  Company Number: FR-BAXTER-2015BAX067847

PATIENT
  Age: 73 Year
  Sex: Male

DRUGS (24)
  1. CORTANCYL [Suspect]
     Active Substance: PREDNISONE
     Indication: DIFFUSE LARGE B-CELL LYMPHOMA
     Dosage: COP THERAPY
     Route: 048
     Dates: start: 20150814
  2. COVERAM [Concomitant]
     Active Substance: AMLODIPINE\PERINDOPRIL
     Indication: PRODUCT USED FOR UNKNOWN INDICATION
     Dosage: 5MG/5MG
     Route: 065
  3. COSOPT [Concomitant]
     Active Substance: DORZOLAMIDE HYDROCHLORIDE\TIMOLOL MALEATE
     Indication: PRODUCT USED FOR UNKNOWN INDICATION
     Dosage: EYEWASH
     Route: 047
  4. SPASFON [Concomitant]
     Active Substance: PHLOROGLUCINOL
     Indication: DRUG THERAPY
     Route: 065
  5. ENDOXAN 1000 MG, POUDRE POUR SOLUTION INJECTABLE [Suspect]
     Active Substance: CYCLOPHOSPHAMIDE
     Dosage: 2ND R-CHOP THERAPY
     Route: 042
     Dates: start: 20150911, end: 20150911
  6. VINCRISTINE HOSPIRA [Suspect]
     Active Substance: VINCRISTINE
     Dosage: 2MG/2ML, 1ST R-CHOP THERAPY
     Route: 042
     Dates: start: 20150821
  7. DOXORUBICINE TEVA [Suspect]
     Active Substance: DOXORUBICIN
     Dosage: 2ND R-CHOP THERAPY
     Route: 042
     Dates: start: 20150911, end: 20150911
  8. CORTANCYL [Suspect]
     Active Substance: PREDNISONE
     Dosage: 1ST R-CHOP THERAPY; DAY 1 TO DAY 5
     Route: 048
     Dates: start: 20150821
  9. MABTHERA [Suspect]
     Active Substance: RITUXIMAB
     Indication: DIFFUSE LARGE B-CELL LYMPHOMA
     Dosage: 1ST R-CHOP THERAPY
     Route: 058
     Dates: start: 20150821
  10. MONOPROST [Concomitant]
     Active Substance: LATANOPROST
     Indication: PRODUCT USED FOR UNKNOWN INDICATION
     Dosage: EYEWASH
     Route: 047
  11. PRIMPERAN [Concomitant]
     Active Substance: METOCLOPRAMIDE HYDROCHLORIDE
     Indication: NAUSEA
     Dosage: IF NAUSEA
     Route: 065
  12. VINCRISTINE HOSPIRA [Suspect]
     Active Substance: VINCRISTINE
     Dosage: 2MG/2ML, 2ND R-CHOP THERAPY
     Route: 042
     Dates: start: 20150911, end: 20150911
  13. ZELITREX [Concomitant]
     Active Substance: VALACYCLOVIR HYDROCHLORIDE
     Indication: DRUG THERAPY
     Route: 065
  14. DOXORUBICINE TEVA [Suspect]
     Active Substance: DOXORUBICIN
     Indication: DIFFUSE LARGE B-CELL LYMPHOMA
     Dosage: 1ST R-CHOP THERAPY
     Route: 042
     Dates: start: 20150821
  15. VINCRISTINE HOSPIRA [Suspect]
     Active Substance: VINCRISTINE
     Indication: DIFFUSE LARGE B-CELL LYMPHOMA
     Dosage: 2MG/2ML, COP CYCLICAL THERAPY
     Route: 042
     Dates: start: 20150814
  16. CORTANCYL [Suspect]
     Active Substance: PREDNISONE
     Dosage: 2ND R-CHOP THERAPY; DAY 1 TO DAY 5
     Route: 048
     Dates: start: 20150911, end: 20150911
  17. OROZAMUDOL [Concomitant]
     Active Substance: TRAMADOL
     Indication: PAIN
     Dosage: IF PAIN
     Route: 065
  18. ENDOXAN 1000 MG, POUDRE POUR SOLUTION INJECTABLE [Suspect]
     Active Substance: CYCLOPHOSPHAMIDE
     Dosage: 1ST R-CHOP THERAPY
     Route: 042
     Dates: start: 20150821
  19. ZYLORIC [Concomitant]
     Active Substance: ALLOPURINOL
     Indication: DRUG THERAPY
     Route: 065
  20. MOVICOL [Concomitant]
     Active Substance: POLYETHYLENE GLYCOL 3350\POTASSIUM CHLORIDE\SODIUM BICARBONATE\SODIUM CHLORIDE
     Indication: CONSTIPATION
     Dosage: DEPENDING ON CONSTIPATION
     Route: 065
  21. ENDOXAN 1000 MG, POUDRE POUR SOLUTION INJECTABLE [Suspect]
     Active Substance: CYCLOPHOSPHAMIDE
     Indication: DIFFUSE LARGE B-CELL LYMPHOMA
     Dosage: COP CYCLIC THERAPY
     Route: 042
     Dates: start: 20150814
  22. MABTHERA [Suspect]
     Active Substance: RITUXIMAB
     Dosage: 2ND R-CHOP THERAPY
     Route: 058
     Dates: start: 20150911, end: 20150911
  23. GRANOCYTE [Concomitant]
     Active Substance: LENOGRASTIM
     Indication: DRUG THERAPY
     Dosage: 34 MIU; DURING 5 DAYS
     Route: 065
  24. AUGMENTIN [Concomitant]
     Active Substance: AMOXICILLIN\CLAVULANATE POTASSIUM
     Indication: DRUG THERAPY
     Dosage: 1 G/ 125 MG
     Route: 065
     Dates: end: 20150829

REACTIONS (6)
  - Cytomegalovirus infection [Unknown]
  - Lower respiratory tract infection viral [Unknown]
  - Lung disorder [Recovering/Resolving]
  - Pneumocystis jirovecii pneumonia [Recovering/Resolving]
  - Acute respiratory distress syndrome [Recovered/Resolved]
  - Asthenia [Unknown]

NARRATIVE: CASE EVENT DATE: 20151003
